FAERS Safety Report 18119670 (Version 2)
Quarter: 2020Q3

REPORT INFORMATION
  Report Type: Report from Study
  Country: IL (occurrence: IL)
  Receive Date: 20200806
  Receipt Date: 20200817
  Transmission Date: 20201103
  Serious: Yes (Death)
  Sender: FDA-Public Use
  Company Number: IL-PFIZER INC-2020297054

PATIENT
  Age: 87 Year
  Sex: Male

DRUGS (1)
  1. TAFAMIDIS [Suspect]
     Active Substance: TAFAMIDIS MEGLUMINE
     Dosage: 61 MG

REACTIONS (1)
  - Death [Fatal]
